FAERS Safety Report 6788341-4 (Version None)
Quarter: 2010Q2

REPORT INFORMATION
  Report Type: 
  Country: None (occurrence: None)
  Receive Date: 20100623
  Receipt Date: 20090604
  Transmission Date: 20101027
  Serious: Yes (Other)
  Sender: FDA-Public Use
  Company Number: US-PFIZER INC-2008003832

PATIENT
  Sex: Female

DRUGS (25)
  1. PROVERA [Suspect]
     Indication: HORMONE REPLACEMENT THERAPY
     Dosage: UNK
     Route: 048
     Dates: start: 19891025, end: 19910520
  2. PROVERA [Suspect]
     Dosage: UNK
     Route: 048
     Dates: start: 19910626, end: 19991013
  3. PROVERA [Suspect]
     Dosage: UNK
     Route: 048
     Dates: start: 20020101, end: 20040524
  4. OGEN [Suspect]
     Indication: HORMONE REPLACEMENT THERAPY
     Dosage: UNK
     Route: 048
     Dates: start: 19910520, end: 20040203
  5. PROGESTERONE [Suspect]
     Indication: HORMONE REPLACEMENT THERAPY
     Dosage: UNK
     Dates: start: 19910520, end: 19910626
  6. ESTROGENS [Suspect]
     Indication: HORMONE REPLACEMENT THERAPY
     Dosage: UNK
     Dates: start: 19890108, end: 19900622
  7. ESTROGENS CONJUGATED [Suspect]
     Indication: HORMONE REPLACEMENT THERAPY
     Dosage: UNK
     Dates: start: 19900622, end: 19910520
  8. CENESTIN [Suspect]
     Indication: HORMONE REPLACEMENT THERAPY
     Dosage: UNK
     Dates: start: 20040203, end: 20040524
  9. PREMPRO [Suspect]
     Indication: HORMONE REPLACEMENT THERAPY
     Dosage: UNK
     Dates: start: 20040524, end: 20051231
  10. MEDROXYPROGESTERONE ACETATE [Suspect]
     Indication: HORMONE REPLACEMENT THERAPY
     Dosage: UNK
     Dates: start: 19991013, end: 20020101
  11. METFORMIN [Concomitant]
     Indication: DIABETES MELLITUS
     Dosage: 200 MG, 1X/DAY
     Dates: start: 19910101
  12. CARDIZEM CD [Concomitant]
     Indication: HEART RATE
     Dosage: 360 MG, 1X/DAY
     Dates: start: 20030101
  13. NAPROXEN [Concomitant]
     Indication: INFLAMMATION
     Dosage: 1000 MG, 1X/DAY
     Dates: start: 19910101
  14. TRAMADOL [Concomitant]
     Indication: INFLAMMATORY PAIN
     Dosage: 100 MG, UNK
     Dates: start: 19910101
  15. SYNTHROID [Concomitant]
     Indication: THYROID DISORDER
     Dosage: 0.125 MG, 1X/DAY
     Dates: start: 20040201
  16. DIOVANE [Concomitant]
     Indication: BLOOD PRESSURE MANAGEMENT
     Dosage: 160 MG, 1X/DAY
     Dates: start: 19920101
  17. HYDROCHLOROTHIAZIDE [Concomitant]
     Indication: DIURETIC THERAPY
     Dosage: 25 MG, 1X/DAY
     Dates: start: 19940101
  18. SITAGLIPTIN [Concomitant]
     Indication: DIABETES MELLITUS
     Dosage: 100 MG, 1X/DAY
     Dates: start: 20040101
  19. CRESTOR [Concomitant]
     Indication: BLOOD CHOLESTEROL
     Dosage: 10 MG, 1X/DAY
     Dates: start: 19980101
  20. MULTIVITAMIN [Concomitant]
     Indication: MACULAR DEGENERATION
     Dosage: UNK
     Dates: start: 19960101
  21. FUROSEMIDE [Concomitant]
     Indication: DIURETIC THERAPY
     Dosage: 40 MG, UNK
     Dates: start: 20010101
  22. KLOR-CON [Concomitant]
     Indication: ELECTROLYTE SUBSTITUTION THERAPY
     Dosage: 10 MEQ, 1X/DAY
     Dates: start: 20010101
  23. INSULIN INJECTION, ISOPHANE [Concomitant]
     Indication: DIABETES MELLITUS
     Dosage: 28 UNITS
     Dates: start: 20040101
  24. REGULAR INSULIN [Concomitant]
     Indication: DIABETES MELLITUS
     Dosage: UNK
     Dates: start: 20040101
  25. FOSAMAX [Concomitant]
     Indication: OSTEOPOROSIS
     Dosage: 70 MG, WEEKLY
     Dates: start: 20040101

REACTIONS (1)
  - BREAST CANCER FEMALE [None]
